FAERS Safety Report 7493177-5 (Version None)
Quarter: 2011Q2

REPORT INFORMATION
  Report Type: 
  Country: None (occurrence: None)
  Receive Date: 20110520
  Receipt Date: 20110516
  Transmission Date: 20111010
  Serious: Yes (Congenital Anomaly, Other)
  Sender: FDA-Public Use
  Company Number: US-PFIZER INC-2007095360

PATIENT
  Sex: Female
  Weight: 3 kg

DRUGS (3)
  1. ZOLOFT [Suspect]
     Indication: DEPRESSION
     Dosage: UNK
     Route: 064
     Dates: start: 20010101
  2. RHOGAM [Concomitant]
     Dosage: UNK
     Route: 064
     Dates: start: 20050207
  3. PRENATAL VITAMINS [Concomitant]
     Route: 064

REACTIONS (7)
  - COARCTATION OF THE AORTA [None]
  - SCAR [None]
  - BICUSPID AORTIC VALVE [None]
  - CONVULSION [None]
  - VENTRICULAR SEPTAL DEFECT [None]
  - DRUG EXPOSURE DURING PREGNANCY [None]
  - AORTIC ELONGATION [None]
